FAERS Safety Report 24423913 (Version 1)
Quarter: 2024Q4

REPORT INFORMATION
  Report Type: Spontaneous
  Country: US (occurrence: None)
  Receive Date: 20241009
  Receipt Date: 20241009
  Transmission Date: 20250114
  Serious: Yes (Hospitalization)
  Sender: Public
  Company Number: None

PATIENT
  Age: 76 Year
  Sex: Female
  Weight: 58.5 kg

DRUGS (10)
  1. ROSUVASTATIN [Suspect]
     Active Substance: ROSUVASTATIN
     Indication: Hyperlipidaemia
     Dates: start: 20240801, end: 20240915
  2. Watchman device (anti-thrombotic) [Concomitant]
  3. FLECAINIDE [Concomitant]
  4. DILTIAZEM [Concomitant]
  5. acycolvir [Concomitant]
  6. ALENDRONATE [Concomitant]
  7. Vit D3 2000u [Concomitant]
  8. Centrum Women over 50 [Concomitant]
  9. Vit C with ascorbic acid [Concomitant]
  10. lutein + zeoxanthene [Concomitant]

REACTIONS (1)
  - Liver injury [None]

NARRATIVE: CASE EVENT DATE: 20240916
